FAERS Safety Report 4565299-X (Version None)
Quarter: 2005Q1

REPORT INFORMATION
  Report Type: 
  Country: None (occurrence: None)
  Receive Date: 20050127
  Receipt Date: 20050127
  Transmission Date: 20050727
  Serious: Yes (Life-Threatening, Hospitalization)
  Sender: FDA-Public Use
  Company Number: None

PATIENT
  Age: 59 Year
  Sex: Male
  Weight: 68.1 kg

DRUGS (5)
  1. WARFARIN SODIUM [Suspect]
  2. TERAZOSIN [Concomitant]
  3. TEMAZEPAM [Concomitant]
  4. LOVASTATIN [Concomitant]
  5. IPRATROPIUM/ALBUTEROL [Concomitant]

REACTIONS (2)
  - HAEMOPTYSIS [None]
  - INTERNATIONAL NORMALISED RATIO INCREASED [None]
